FAERS Safety Report 11022405 (Version 1)
Quarter: 2015Q2

REPORT INFORMATION
  Report Type: Spontaneous
  Country: US (occurrence: US)
  Receive Date: 20150413
  Receipt Date: 20150413
  Transmission Date: 20150821
  Serious: Yes (Hospitalization, Other)
  Sender: FDA-Public Use
  Company Number: US-ASTELLAS-2014US006475

PATIENT
  Sex: Male

DRUGS (12)
  1. HYDREA [Suspect]
     Active Substance: HYDROXYUREA
     Dosage: UNK, UNKNOWN FREQ.
     Route: 065
     Dates: start: 20140404
  2. PROGRAF [Suspect]
     Active Substance: TACROLIMUS\TACROLIMUS ANHYDROUS
     Indication: STEM CELL TRANSPLANT
     Dosage: UNK, UNKNOWN FREQ.
     Route: 048
     Dates: end: 20140403
  3. PROGRAF [Suspect]
     Active Substance: TACROLIMUS\TACROLIMUS ANHYDROUS
     Route: 048
  4. VANCOMYCIN [Suspect]
     Active Substance: VANCOMYCIN
     Indication: SEPTIC SHOCK
     Dosage: UNK, UNKNOWN FREQ.
     Route: 042
     Dates: end: 20140405
  5. SORAFENIB [Concomitant]
     Active Substance: SORAFENIB
     Route: 065
     Dates: start: 20131227, end: 20131231
  6. PROGRAF [Suspect]
     Active Substance: TACROLIMUS\TACROLIMUS ANHYDROUS
     Dosage: UNK, UNKNOWN FREQ.
     Route: 042
     Dates: start: 20140404, end: 20140405
  7. HYDREA [Suspect]
     Active Substance: HYDROXYUREA
     Indication: WHITE BLOOD CELL COUNT INCREASED
     Route: 065
     Dates: start: 20140325, end: 20140327
  8. HYDREA [Suspect]
     Active Substance: HYDROXYUREA
     Route: 065
     Dates: start: 20140328, end: 20140330
  9. MYCOPHENOLATE MOFETIL. [Concomitant]
     Active Substance: MYCOPHENOLATE MOFETIL
     Indication: STEM CELL TRANSPLANT
     Dosage: UNK UNK, UNKNOWN FREQ.
     Route: 065
  10. ACYCLOVIR                          /00587301/ [Suspect]
     Active Substance: ACYCLOVIR
     Indication: PRODUCT USED FOR UNKNOWN INDICATION
     Dosage: UNK, UNKNOWN FREQ.
     Route: 048
  11. ACYCLOVIR                          /00587301/ [Suspect]
     Active Substance: ACYCLOVIR
     Dosage: UNK UNK, UNKNOWN FREQ.
     Route: 042
     Dates: start: 20140404, end: 20140405
  12. SORAFENIB [Concomitant]
     Active Substance: SORAFENIB
     Indication: ACUTE MYELOID LEUKAEMIA
     Route: 065
     Dates: start: 20140101, end: 20140323

REACTIONS (5)
  - Stomatitis [Recovering/Resolving]
  - Product use issue [Unknown]
  - Acute kidney injury [Unknown]
  - Liver function test abnormal [Recovering/Resolving]
  - Immunosuppressant drug level decreased [Unknown]
